FAERS Safety Report 19101176 (Version 3)
Quarter: 2021Q3

REPORT INFORMATION
  Report Type: Spontaneous
  Country: JP (occurrence: JP)
  Receive Date: 20210407
  Receipt Date: 20210714
  Transmission Date: 20211014
  Serious: Yes (Death, Hospitalization, Other)
  Sender: FDA-Public Use
  Company Number: JP-BRISTOL-MYERS SQUIBB COMPANY-BMS-2021-008692

PATIENT
  Age: 74 Year
  Sex: Male
  Weight: 52 kg

DRUGS (9)
  1. NEXAVAR [Suspect]
     Active Substance: SORAFENIB
     Indication: METASTATIC RENAL CELL CARCINOMA
     Dosage: 200 MILLIGRAM, Q12H
     Route: 048
     Dates: start: 20190115, end: 20190816
  2. RANMARK [Concomitant]
     Active Substance: DENOSUMAB
     Indication: PROPHYLAXIS
     Dosage: 120 MILLIGRAM, QD
     Route: 058
     Dates: start: 20170825, end: 20190705
  3. LANSOPRAZOLE. [Suspect]
     Active Substance: LANSOPRAZOLE
     Indication: METASTATIC RENAL CELL CARCINOMA
     Dosage: 15 MILLIGRAM, QD
     Route: 048
     Dates: start: 20180903, end: 20190816
  4. URSODEOXYCHOLIC ACID [Concomitant]
     Active Substance: URSODIOL
     Indication: PRODUCT USED FOR UNKNOWN INDICATION
     Dosage: 100 MILLIGRAM, Q8H
     Route: 048
     Dates: start: 20190524, end: 20190816
  5. DENOTAS [Concomitant]
     Active Substance: CALCIUM CARBONATE\CHOLECALCIFEROL\MAGNESIUM CARBONATE
     Indication: METASTATIC RENAL CELL CARCINOMA
     Dosage: 2 DOSAGE FORM, QD
     Route: 048
     Dates: start: 20170825, end: 20190816
  6. OXYCODONE [OXYCODONE HYDROCHLORIDE] [Concomitant]
     Active Substance: OXYCODONE HYDROCHLORIDE
     Indication: METASTATIC RENAL CELL CARCINOMA
     Dosage: 10 MILLIGRAM, Q12H
     Route: 048
     Dates: start: 20180910, end: 20190816
  7. LEVOTHYROXINE SODIUM. [Concomitant]
     Active Substance: LEVOTHYROXINE SODIUM
     Indication: PRODUCT USED FOR UNKNOWN INDICATION
     Dosage: 50?75 MG, EVERYDAY
     Route: 048
     Dates: start: 20170616, end: 20190816
  8. OPDIVO [Suspect]
     Active Substance: NIVOLUMAB
     Indication: METASTATIC RENAL CELL CARCINOMA
     Dosage: 150 MILLIGRAM
     Route: 041
     Dates: start: 20180824, end: 20181130
  9. SYMPROIC [Concomitant]
     Active Substance: NALDEMEDINE
     Indication: METASTATIC RENAL CELL CARCINOMA
     Dosage: 0.2 MILLIGRAM, QD
     Route: 048
     Dates: start: 20180910, end: 20190816

REACTIONS (4)
  - Pneumonia bacterial [Fatal]
  - Interstitial lung disease [Fatal]
  - Rash [Recovered/Resolved]
  - Prescribed underdose [Unknown]

NARRATIVE: CASE EVENT DATE: 20180903
